FAERS Safety Report 8196954-0 (Version None)
Quarter: 2012Q1

REPORT INFORMATION
  Report Type: 
  Country: None (occurrence: None)
  Receive Date: 20120309
  Receipt Date: 20120301
  Transmission Date: 20120608
  Serious: Yes (Hospitalization)
  Sender: FDA-Public Use
  Company Number: ZA-SANOFI-AVENTIS-2012SA013970

PATIENT
  Age: 41 Year
  Sex: Male
  Weight: 58.3 kg

DRUGS (3)
  1. INSULIN [Suspect]
  2. ISONIAZID [Suspect]
     Indication: PULMONARY TUBERCULOSIS
     Route: 065
     Dates: start: 20111013, end: 20111221
  3. MOXIFLOXACIN HCL [Suspect]
     Route: 065
     Dates: start: 20111013, end: 20111221

REACTIONS (4)
  - WEIGHT DECREASED [None]
  - POLYURIA [None]
  - HYPERGLYCAEMIA [None]
  - POLYDIPSIA [None]
